FAERS Safety Report 6293386-7 (Version None)
Quarter: 2009Q3

REPORT INFORMATION
  Report Type: 
  Country: None (occurrence: None)
  Receive Date: 20090731
  Receipt Date: 20090721
  Transmission Date: 20100115
  Serious: Yes (Hospitalization)
  Sender: FDA-Public Use
  Company Number: FR-SANOFI-SYNTHELABO-A02200901501

PATIENT
  Sex: Male

DRUGS (9)
  1. METHYLDOPA [Concomitant]
     Indication: HYPERTENSION
     Route: 048
     Dates: start: 20080415
  2. CARDENSIEL [Concomitant]
     Indication: CARDIAC FAILURE
     Route: 048
  3. ZOCOR [Concomitant]
     Indication: HYPERCHOLESTEROLAEMIA
     Route: 048
  4. ZYLORIC [Concomitant]
     Indication: HYPERURICAEMIA
     Route: 048
  5. OROCAL [Concomitant]
     Indication: CALCIUM DEFICIENCY
     Route: 048
  6. MICARDIS [Concomitant]
     Indication: HYPERTENSION
     Route: 048
     Dates: end: 20090518
  7. PLAVIX [Suspect]
     Indication: CAROTID ARTERY STENOSIS
     Route: 048
     Dates: start: 20090420, end: 20090511
  8. LASILIX FAIBLE [Concomitant]
     Indication: HYPERTENSION
     Route: 048
     Dates: start: 20080506
  9. KARDEGIC [Concomitant]
     Indication: DRUG USE FOR UNKNOWN INDICATION
     Route: 048
     Dates: end: 20090516

REACTIONS (4)
  - COLITIS COLLAGENOUS [None]
  - DEHYDRATION [None]
  - DIARRHOEA [None]
  - RENAL FAILURE ACUTE [None]
